FAERS Safety Report 12731289 (Version 1)
Quarter: 2016Q3

REPORT INFORMATION
  Report Type: Spontaneous
  Country: NO (occurrence: NO)
  Receive Date: 20160912
  Receipt Date: 20160912
  Transmission Date: 20161109
  Serious: Yes (Life-Threatening)
  Sender: FDA-Public Use
  Company Number: NO-BAXTER-2016BAX045589

PATIENT
  Age: 33 Year
  Sex: Female

DRUGS (5)
  1. MARCAIN [Suspect]
     Active Substance: BUPIVACAINE HYDROCHLORIDE
     Indication: LOCAL ANAESTHESIA
     Dosage: DOSE: 25 MG; 5 ML OF A 5 MG/ML SOLUTION. IOMERON, MARCAIN AND DOTAREM WERE ADMINISTERED TOGETHER INT
     Route: 014
     Dates: start: 20160413, end: 20160413
  2. DOTAREM [Suspect]
     Active Substance: GADOTERATE MEGLUMINE
     Indication: OFF LABEL USE
  3. DOTAREM [Suspect]
     Active Substance: GADOTERATE MEGLUMINE
     Indication: ARTHROGRAM
     Dosage: DOSE: 27.38 MG; 1 ML OF A 279.3 MG/ML SOLUTION WAS DILUTED WITH 50 ML OF STERILE SALINE AND 5 ML OF
     Route: 014
     Dates: start: 20160413, end: 20160413
  4. NATRIUMKLORID BAXTER VIAFLO 9 MG/ML INFUSJONSV?SKE, OPPL?SNING [Suspect]
     Active Substance: SODIUM CHLORIDE
     Indication: MEDICATION DILUTION
     Dosage: 1 ML OF A 279.3 MG/ML DOTAREM SOLUTION WAS DILUTED WITH 50 ML OF STERILE SALINE AND 5 ML OF THIS SOL
     Route: 014
     Dates: start: 20160413, end: 20160413
  5. IOMERON [Suspect]
     Active Substance: IOMEPROL
     Indication: ARTHROGRAM
     Dosage: DOSE: 1250 MG; 5 ML OF A 250 MG/ML SOLUTION
     Route: 014
     Dates: start: 20160413, end: 20160413

REACTIONS (1)
  - Anaphylactic reaction [Recovered/Resolved]

NARRATIVE: CASE EVENT DATE: 20160413
